FAERS Safety Report 23227992 (Version 2)
Quarter: 2023Q4

REPORT INFORMATION
  Report Type: Spontaneous
  Country: RS (occurrence: None)
  Receive Date: 20231125
  Receipt Date: 20231228
  Transmission Date: 20240110
  Serious: Yes (Other)
  Sender: FDA-Public Use
  Company Number: RS-ROCHE-3460066

PATIENT
  Age: 7 Year
  Sex: Female
  Weight: 20.7 kg

DRUGS (8)
  1. TOCILIZUMAB [Suspect]
     Active Substance: TOCILIZUMAB
     Indication: Product used for unknown indication
     Route: 065
  2. ACTEMRA [Suspect]
     Active Substance: TOCILIZUMAB
     Indication: Product used for unknown indication
     Dosage: STRENGTH: 162 MG/0.9 ML,
     Route: 058
     Dates: start: 20230711, end: 20231003
  3. ACTEMRA [Suspect]
     Active Substance: TOCILIZUMAB
     Indication: Product used for unknown indication
     Route: 042
     Dates: start: 20231024
  4. PREDNISONE [Concomitant]
     Active Substance: PREDNISONE
  5. METHOTREXATE [Concomitant]
     Active Substance: METHOTREXATE
  6. PRONISON [Concomitant]
     Active Substance: PREDNISONE
  7. HUMIRA [Concomitant]
     Active Substance: ADALIMUMAB
  8. ENBREL [Concomitant]
     Active Substance: ETANERCEPT

REACTIONS (5)
  - Oligoarthritis [Unknown]
  - Thrombocytosis [Unknown]
  - Bursitis [Unknown]
  - Red blood cell sedimentation rate increased [Unknown]
  - C-reactive protein increased [Unknown]
